FAERS Safety Report 21615433 (Version 1)
Quarter: 2022Q4

REPORT INFORMATION
  Report Type: Report from Study
  Country: FR (occurrence: FR)
  Receive Date: 20221118
  Receipt Date: 20221118
  Transmission Date: 20230113
  Serious: Yes (Other)
  Sender: FDA-Public Use
  Company Number: FR-002147023-NVSC2022FR258708

PATIENT
  Age: 23 Year
  Sex: Female
  Weight: 58 kg

DRUGS (6)
  1. NELARABINE [Suspect]
     Active Substance: NELARABINE
     Indication: Acute lymphocytic leukaemia
     Dosage: 1500 MG/M2
     Route: 065
     Dates: start: 20180423, end: 20180427
  2. ASPARAGINASE [Suspect]
     Active Substance: ASPARAGINASE
     Indication: Acute lymphocytic leukaemia
     Dosage: 6000 UI/M2
     Route: 042
     Dates: end: 20180719
  3. VINCRISTINE [Suspect]
     Active Substance: VINCRISTINE
     Indication: Acute lymphocytic leukaemia
     Dosage: 2 MG, DAY1, DAY8, DAY 15 AND DAY 16
     Route: 042
     Dates: start: 20180626, end: 20180717
  4. DAUNORUBICIN [Suspect]
     Active Substance: DAUNORUBICIN
     Indication: Acute lymphocytic leukaemia
     Dosage: 30 MG/M2, DAY 1 TO DAY 3, DAY 15 AND DAY 16
     Route: 042
     Dates: start: 20180626, end: 20180711
  5. CYCLOPHOSPHAMIDE [Suspect]
     Active Substance: CYCLOPHOSPHAMIDE
     Indication: Acute lymphocytic leukaemia
     Dosage: 750 MG/M2, J1 AND J15
     Route: 042
     Dates: start: 20180626, end: 20180710
  6. PREDNISONE [Suspect]
     Active Substance: PREDNISONE
     Indication: Acute lymphocytic leukaemia
     Dosage: 60 MG/M2, J1 TO J14
     Route: 042
     Dates: start: 20180626, end: 20180709

REACTIONS (1)
  - Hepatic cytolysis [Recovering/Resolving]

NARRATIVE: CASE EVENT DATE: 20180719
